FAERS Safety Report 9287042 (Version 2)
Quarter: 2013Q2

REPORT INFORMATION
  Report Type: Spontaneous
  Country: VE (occurrence: VE)
  Receive Date: 20130513
  Receipt Date: 20130522
  Transmission Date: 20140414
  Serious: Yes (Death, Other)
  Sender: FDA-Public Use
  Company Number: VE-ELI_LILLY_AND_COMPANY-VE201305002030

PATIENT
  Age: 75 Year
  Sex: Male

DRUGS (3)
  1. HUMALOG 25% LISPRO, 75% NPL [Suspect]
     Dosage: 25 U, EACH MORNING
     Dates: start: 20130323, end: 201304
  2. LOSARTAN [Concomitant]
  3. AMLODIPINE [Concomitant]

REACTIONS (2)
  - Septic shock [Fatal]
  - Pancreas infection [Unknown]
